FAERS Safety Report 9164165 (Version 1)
Quarter: 2013Q1

REPORT INFORMATION
  Report Type: Spontaneous
  Country: US (occurrence: None)
  Receive Date: 20130313
  Receipt Date: 20130313
  Transmission Date: 20140127
  Serious: Yes (Other)
  Sender: FDA-Public Use
  Company Number: None

PATIENT
  Age: 23 Month
  Sex: Female
  Weight: 14.6 kg

DRUGS (1)
  1. VALPROIC ACID [Suspect]
     Indication: CONVULSION
     Dosage: 360MG EVERY 8 HRS GTUBE PO
     Route: 048
     Dates: start: 20130101, end: 20130307

REACTIONS (3)
  - Respiratory distress [None]
  - Influenza A virus test positive [None]
  - Pancreatitis acute [None]
